FAERS Safety Report 6923696-9 (Version None)
Quarter: 2010Q3

REPORT INFORMATION
  Report Type: 
  Country: None (occurrence: None)
  Receive Date: 20100813
  Receipt Date: 20100812
  Transmission Date: 20110219
  Serious: Yes (Other)
  Sender: FDA-Public Use
  Company Number: B0669621A

PATIENT
  Sex: Female

DRUGS (3)
  1. AUGMENTIN '125' [Suspect]
     Indication: PRODUCT USED FOR UNKNOWN INDICATION
     Dosage: 1G SINGLE DOSE
     Route: 048
     Dates: start: 20100101, end: 20100101
  2. ACEBUTOLOL [Concomitant]
     Indication: HYPERTENSION
     Route: 065
  3. ACTIVELLE [Concomitant]
     Indication: HORMONE REPLACEMENT THERAPY
     Route: 065

REACTIONS (8)
  - ANAPHYLACTIC REACTION [None]
  - FACE OEDEMA [None]
  - MALAISE [None]
  - PALMAR ERYTHEMA [None]
  - PARAESTHESIA [None]
  - RASH GENERALISED [None]
  - RESPIRATORY DISORDER [None]
  - SKIN TEST POSITIVE [None]
